FAERS Safety Report 7119899-3 (Version None)
Quarter: 2010Q4

REPORT INFORMATION
  Report Type: 
  Country: None (occurrence: None)
  Receive Date: 20101123
  Receipt Date: 20101019
  Transmission Date: 20110411
  Serious: No
  Sender: FDA-Public Use
  Company Number: US-BRISTOL-MYERS SQUIBB COMPANY-15323462

PATIENT
  Age: 90 Year
  Sex: Female

DRUGS (9)
  1. ONGLYZA [Suspect]
     Indication: DIABETES MELLITUS
     Route: 048
     Dates: start: 20100603, end: 20100618
  2. ONGLYZA [Suspect]
     Indication: DIABETES MELLITUS INADEQUATE CONTROL
     Route: 048
     Dates: start: 20100603, end: 20100618
  3. JANUVIA [Suspect]
     Dosage: INCREASED TO 100MG/D ON 20MAY10
     Dates: start: 20100422, end: 20100603
  4. DILTIAZEM HCL [Concomitant]
  5. LEXAPRO [Concomitant]
  6. DIGOXIN [Concomitant]
  7. LEVOXYL [Concomitant]
  8. GLIMEPIRIDE [Concomitant]
  9. DYAZIDE [Concomitant]

REACTIONS (3)
  - BLOOD GLUCOSE INCREASED [None]
  - DIARRHOEA [None]
  - VOMITING [None]
